FAERS Safety Report 21184331 (Version 1)
Quarter: 2022Q3

REPORT INFORMATION
  Report Type: Spontaneous
  Country: US (occurrence: None)
  Receive Date: 20220806
  Receipt Date: 20220806
  Transmission Date: 20221026
  Serious: Yes (Life-Threatening, Other)
  Sender: FDA-Public Use
  Company Number: None

PATIENT
  Age: 31 Year
  Sex: Female
  Weight: 102.06 kg

DRUGS (2)
  1. NEXPLANON [Suspect]
     Active Substance: ETONOGESTREL
     Indication: Contraception
     Dosage: OTHER ROUTE : SUBDERMAL;?
     Route: 050
     Dates: start: 20210707, end: 20220805
  2. NEXPLANON [Concomitant]
     Active Substance: ETONOGESTREL
     Dates: start: 20210807, end: 20220805

REACTIONS (2)
  - Embolism venous [None]
  - Pain in extremity [None]

NARRATIVE: CASE EVENT DATE: 20220722
